FAERS Safety Report 26038454 (Version 2)
Quarter: 2025Q4

REPORT INFORMATION
  Report Type: Spontaneous
  Country: US (occurrence: US)
  Receive Date: 20251113
  Receipt Date: 20251116
  Transmission Date: 20260117
  Serious: No
  Sender: SANDOZ
  Company Number: US-SANDOZ-SDZ2025US084388

PATIENT
  Sex: Female

DRUGS (2)
  1. ESTRADIOL [Suspect]
     Active Substance: ESTRADIOL
     Indication: Product used for unknown indication
     Dosage: ESTRADIOL TRANSDERMAL PATCH,  0.05 MG / 1 10, ESTRADIOL 0.0375  MG/1D 4TTSM 5 YEARS
     Route: 062
  2. ESTRADIOL [Suspect]
     Active Substance: ESTRADIOL
     Indication: Product used for unknown indication
     Dosage: ESTRADIOL TRANSDERMAL PATCH,  0.05 MG / 1 10, ESTRADIOL 0.0375  MG/1D 4TTSM 5 YEARS
     Route: 062

REACTIONS (3)
  - Wrong technique in device usage process [Unknown]
  - Device adhesion issue [Unknown]
  - Product use complaint [Unknown]

NARRATIVE: CASE EVENT DATE: 20251020
